FAERS Safety Report 6698656-6 (Version None)
Quarter: 2010Q2

REPORT INFORMATION
  Report Type: 
  Country: None (occurrence: None)
  Receive Date: 20100427
  Receipt Date: 20100414
  Transmission Date: 20101027
  Serious: Yes (Other)
  Sender: FDA-Public Use
  Company Number: PHHY2010GB19040

PATIENT
  Sex: Female

DRUGS (11)
  1. CLOZARIL [Suspect]
     Indication: SCHIZOPHRENIA
     Dosage: 600 MG, QD
     Route: 048
     Dates: start: 20090401
  2. CLOZARIL [Suspect]
     Dosage: 400 MG, UNK
  3. AMISULPRIDE [Concomitant]
     Dosage: 400 MG, UNK
  4. ORLISTAT [Concomitant]
     Dosage: 120 MG, TID
  5. NICOTINE [Concomitant]
  6. SCOPODERM [Concomitant]
  7. ESCITALOPRAM [Concomitant]
  8. SALBUTAMOL [Concomitant]
     Dosage: 200 UG, NOCTE
  9. OXYTETRACYCLINE [Concomitant]
  10. VITAMIN D3 [Concomitant]
     Indication: ACNE
  11. TRAMADOL HCL [Concomitant]
     Dosage: 50 MG, QDS

REACTIONS (4)
  - ANTIPSYCHOTIC DRUG LEVEL INCREASED [None]
  - DYSPHEMIA [None]
  - MUSCLE TWITCHING [None]
  - PHOTOPSIA [None]
